FAERS Safety Report 23506006 (Version 1)
Quarter: 2024Q1

REPORT INFORMATION
  Report Type: Spontaneous
  Country: ZA (occurrence: ZA)
  Receive Date: 20240209
  Receipt Date: 20240209
  Transmission Date: 20240410
  Serious: Yes (Other)
  Sender: FDA-Public Use
  Company Number: ZA-SA-SAC20240204000023

PATIENT
  Sex: Male

DRUGS (8)
  1. ARAVA [Suspect]
     Active Substance: LEFLUNOMIDE
     Dosage: UNK
  2. HUMIRA [Concomitant]
     Active Substance: ADALIMUMAB
     Dosage: 40 MG
  3. METHOTREXATE [Concomitant]
     Active Substance: METHOTREXATE
     Dosage: 25 MG, QW
     Dates: start: 20090101
  4. ENBREL [Concomitant]
     Active Substance: ETANERCEPT
     Dosage: 50 MG, QW
  5. SULFASALAZINE [Concomitant]
     Active Substance: SULFASALAZINE
     Dosage: UNK
  6. CHLOROQUINE [Concomitant]
     Active Substance: CHLOROQUINE
     Dosage: UNK
  7. ARCOXIA [Concomitant]
     Active Substance: ETORICOXIB
     Dosage: UNK UNK, PRN
  8. PREDNISONE [Concomitant]
     Active Substance: PREDNISONE
     Dosage: 5 MG, PRN

REACTIONS (2)
  - Rheumatoid arthritis [Unknown]
  - Gait disturbance [Unknown]
